FAERS Safety Report 4813027-2 (Version None)
Quarter: 2005Q4

REPORT INFORMATION
  Report Type: 
  Country: None (occurrence: None)
  Receive Date: 20051026
  Receipt Date: 20051007
  Transmission Date: 20060501
  Serious: Yes (Hospitalization)
  Sender: FDA-Public Use
  Company Number: USA0509107894

PATIENT
  Age: 60 Year
  Sex: Male
  Weight: 68 kg

DRUGS (2)
  1. CYMBALTA [Suspect]
     Indication: DEPRESSION
     Dosage: 60 MG
  2. LIPITOR [Concomitant]

REACTIONS (9)
  - COMA [None]
  - DEPRESSION [None]
  - ECONOMIC PROBLEM [None]
  - FEELING ABNORMAL [None]
  - LEGAL PROBLEM [None]
  - OVERDOSE [None]
  - PNEUMONIA [None]
  - RESPIRATORY FAILURE [None]
  - SUICIDAL IDEATION [None]
